FAERS Safety Report 5078294-1 (Version None)
Quarter: 2006Q3

REPORT INFORMATION
  Report Type: 
  Country: None (occurrence: None)
  Receive Date: 20060811
  Receipt Date: 20060707
  Transmission Date: 20061208
  Serious: Yes (Life-Threatening, Hospitalization, Disabling)
  Sender: FDA-Public Use
  Company Number: BE-MERCK-0607BEL00006

PATIENT
  Age: 72 Year
  Sex: Male
  Weight: 71 kg

DRUGS (8)
  1. ZOCOR [Suspect]
     Indication: HYPERCHOLESTEROLAEMIA
     Route: 048
     Dates: start: 20040101, end: 20050401
  2. ZOCOR [Suspect]
     Route: 048
     Dates: start: 20050401, end: 20060504
  3. ZOCOR [Suspect]
     Route: 048
     Dates: start: 20060505, end: 20060701
  4. CLOPIDOGREL BISULFATE [Concomitant]
     Indication: CORONARY ARTERY BYPASS
     Route: 048
     Dates: start: 20060524
  5. BISOPROLOL FUMARATE [Concomitant]
     Indication: CORONARY ARTERY BYPASS
     Route: 048
     Dates: start: 20060524
  6. SERTRALINE HYDROCHLORIDE [Concomitant]
     Indication: DEPRESSION
     Route: 048
  7. PANTOPRAZOLE SODIUM [Concomitant]
     Indication: OESOPHAGITIS
     Route: 048
     Dates: start: 20060524
  8. PIRACETAM [Concomitant]
     Indication: MEMORY IMPAIRMENT
     Route: 048

REACTIONS (2)
  - MYALGIA [None]
  - MYOCARDIAL INFARCTION [None]
